FAERS Safety Report 5178804-X (Version None)
Quarter: 2006Q4

REPORT INFORMATION
  Report Type: 
  Country: None (occurrence: None)
  Receive Date: 20061208
  Receipt Date: 20061127
  Transmission Date: 20070319
  Serious: Yes (Other)
  Sender: FDA-Public Use
  Company Number: 2006127178

PATIENT
  Sex: Female

DRUGS (9)
  1. NEURONTIN [Suspect]
     Indication: PARTIAL SEIZURES WITH SECONDARY GENERALISATION
     Dosage: 2700 MG (900 MG, 3 IN 1 D), ORAL
     Route: 048
  2. TOPAMAX [Suspect]
     Indication: PARTIAL SEIZURES WITH SECONDARY GENERALISATION
     Dosage: 350 MG (1 D), ORAL
     Route: 048
  3. BOSWELLIA SERRATA EXTRACT (BOSWELLIA SERRATA EXTRACT) [Concomitant]
  4. HYDROCORTISONE [Concomitant]
  5. CALCIUM (CALCIUM) [Concomitant]
  6. JODTHYROX (LEVOTHYROXINE SODIUM, POTASSIUM IODINE) [Concomitant]
  7. SALMON OIL (SALMON OIL) [Concomitant]
  8. ACTONEL [Concomitant]
  9. ACNU (NIMUSTINE HYDROCHLORIDE) [Concomitant]

REACTIONS (6)
  - ALANINE AMINOTRANSFERASE INCREASED [None]
  - ANTINUCLEAR ANTIBODY POSITIVE [None]
  - ASPARTATE AMINOTRANSFERASE INCREASED [None]
  - AUTOIMMUNE DISORDER [None]
  - DRUG TOXICITY [None]
  - LIVER DISORDER [None]
